FAERS Safety Report 13359160 (Version 2)
Quarter: 2017Q2

REPORT INFORMATION
  Report Type: Spontaneous
  Country: BE (occurrence: BE)
  Receive Date: 20170322
  Receipt Date: 20170411
  Transmission Date: 20170830
  Serious: Yes (Other)
  Sender: FDA-Public Use
  Company Number: BE-ASPEN PHARMA TRADING LIMITED US-AG-2017-002041

PATIENT
  Age: 63 Year
  Sex: Male
  Weight: 94 kg

DRUGS (2)
  1. ORGARAN [Suspect]
     Active Substance: DANAPAROID SODIUM
     Route: 065
  2. ORGARAN [Suspect]
     Active Substance: DANAPAROID SODIUM
     Indication: HEPARIN-INDUCED THROMBOCYTOPENIA
     Dosage: DOSE: 1500IU/8H
     Route: 042
     Dates: start: 20131209, end: 20131213

REACTIONS (1)
  - Prescribed underdose [Unknown]
